FAERS Safety Report 5157998-6 (Version None)
Quarter: 2006Q4

REPORT INFORMATION
  Report Type: 
  Country: None (occurrence: None)
  Receive Date: 20061127
  Receipt Date: 20061117
  Transmission Date: 20070319
  Serious: Yes (Death)
  Sender: FDA-Public Use
  Company Number: IT-BOEHRINGER INGELHEIM PHARMACEUTICALS, INC.-2006-DE-06153GD

PATIENT
  Age: 27 Year
  Sex: Female

DRUGS (4)
  1. CLONIDINE [Suspect]
     Indication: HYPERTENSION
  2. MAGNESIUM SULFATE [Suspect]
     Indication: HYPERTENSION
  3. NIMODIPINE [Suspect]
     Indication: HYPERTENSION
  4. SODIUM NITROPRUSSIDE [Suspect]
     Indication: HYPERTENSION

REACTIONS (2)
  - DRUG INEFFECTIVE [None]
  - SUBARACHNOID HAEMORRHAGE [None]
